FAERS Safety Report 9201092 (Version 4)
Quarter: 2013Q3

REPORT INFORMATION
  Report Type: Spontaneous
  Country: US (occurrence: US)
  Receive Date: 20130401
  Receipt Date: 20130927
  Transmission Date: 20140515
  Serious: Yes (Other)
  Sender: FDA-Public Use
  Company Number: US-PFIZER INC-2013100661

PATIENT
  Age: 75 Year
  Sex: Female
  Weight: 74.4 kg

DRUGS (9)
  1. CELEBREX [Suspect]
     Indication: RHEUMATOID ARTHRITIS
     Dosage: 200 MG, UNK
     Route: 065
  2. MELOXICAM [Suspect]
     Indication: PAIN
     Dosage: 7.5 MG, BID (ONE IN THE MORNING AND ONE AT NIGHT)
     Route: 065
  3. MELOXICAM [Suspect]
     Indication: ARTHROPATHY
  4. MELOXICAM [Suspect]
     Indication: RHEUMATOID ARTHRITIS
  5. ETODOLAC [Suspect]
     Indication: PAIN
     Dosage: 400 MG, AS NEEDED 2X DAILY
     Route: 065
  6. DICLOFENAC SODIUM [Suspect]
     Indication: ARTHROPATHY
     Dosage: 75 MG, 2X/DAY
     Route: 065
  7. DICLOFENAC SODIUM [Suspect]
     Indication: PAIN
  8. ASPIRIN [Suspect]
     Indication: PAIN
     Dosage: UNK
     Route: 065
  9. ALEVE [Suspect]
     Indication: PAIN
     Dosage: UNK
     Route: 065

REACTIONS (3)
  - Rheumatoid arthritis [Not Recovered/Not Resolved]
  - Drug ineffective [Not Recovered/Not Resolved]
  - Intentional drug misuse [Not Recovered/Not Resolved]
